FAERS Safety Report 9502070 (Version 1)
Quarter: 2013Q3

REPORT INFORMATION
  Report Type: Spontaneous
  Country: US (occurrence: US)
  Receive Date: 20130905
  Receipt Date: 20130905
  Transmission Date: 20140515
  Serious: Yes (Hospitalization)
  Sender: FDA-Public Use
  Company Number: US-BIOMARINAP-US-2013-101403

PATIENT
  Age: 0 Day
  Sex: Female
  Weight: 4.26 kg

DRUGS (1)
  1. KUVAN [Suspect]
     Indication: PHENYLKETONURIA
     Dosage: 2100 MG, QD
     Route: 064
     Dates: start: 2010

REACTIONS (1)
  - Sepsis [Unknown]
